FAERS Safety Report 4879946-6 (Version None)
Quarter: 2006Q1

REPORT INFORMATION
  Report Type: 
  Country: None (occurrence: None)
  Receive Date: 20060113
  Receipt Date: 20051006
  Transmission Date: 20060701
  Serious: Yes (Hospitalization, Other)
  Sender: FDA-Public Use
  Company Number: US-MERCK-0510USA05802

PATIENT
  Age: 68 Year
  Sex: Male
  Weight: 125 kg

DRUGS (24)
  1. VIOXX [Suspect]
     Indication: ARTHRITIS
     Route: 048
     Dates: start: 19991129, end: 20000826
  2. PLAVIX [Concomitant]
     Indication: CEREBROVASCULAR ACCIDENT PROPHYLAXIS
     Route: 065
  3. ASPIRIN [Concomitant]
     Indication: THROMBOSIS PROPHYLAXIS
     Route: 065
  4. INSULIN R (INSULIN HUMAN) [Concomitant]
     Indication: DIABETES MELLITUS
     Route: 065
  5. INSULIN, ISOPHANE [Concomitant]
     Indication: DIABETES MELLITUS
     Route: 065
  6. AMBIEN [Concomitant]
     Indication: FEELING OF RELAXATION
     Route: 065
  7. AMBIEN [Concomitant]
     Indication: PAIN
     Route: 065
  8. XANAX [Concomitant]
     Indication: ANXIETY
     Route: 065
  9. KEFLEX [Concomitant]
     Route: 065
  10. XENICAL [Concomitant]
     Indication: WEIGHT CONTROL
     Route: 065
  11. ZOCOR [Concomitant]
     Indication: HYPERLIPIDAEMIA
     Route: 065
  12. VIAGRA [Concomitant]
     Indication: ERECTILE DYSFUNCTION
     Route: 065
  13. ERYTHROMYCIN [Concomitant]
     Route: 065
  14. POTASSIUM (UNSPECIFIED) [Concomitant]
     Indication: HYPOKALAEMIA
     Route: 065
  15. NORVASC [Concomitant]
     Indication: HYPERTENSION
     Route: 065
  16. GLYBURIDE [Concomitant]
     Indication: DIABETES MELLITUS
     Route: 065
  17. FUROSEMIDE [Concomitant]
     Indication: HYPERTENSION
     Route: 065
  18. SPIRONOLACTONE [Concomitant]
     Indication: HYPERTENSION
     Route: 065
  19. SYNVISC [Concomitant]
     Indication: OSTEOARTHRITIS
     Route: 065
  20. HYDROCODONE BITARTRATE [Concomitant]
     Indication: PAIN
     Route: 065
     Dates: start: 20000424
  21. VICODIN [Concomitant]
     Indication: PAIN
     Route: 065
  22. NUBAIN [Concomitant]
     Indication: PAIN
     Route: 065
     Dates: start: 20000502
  23. LEVAQUIN [Concomitant]
     Indication: PROPHYLAXIS
     Route: 065
  24. ACCUPRIL [Concomitant]
     Indication: HYPERTENSION
     Route: 065

REACTIONS (26)
  - ANGINA UNSTABLE [None]
  - ARTERIOSCLEROSIS CORONARY ARTERY [None]
  - ASTHENIA [None]
  - BRONCHITIS ACUTE [None]
  - BURNS THIRD DEGREE [None]
  - CELLULITIS [None]
  - CHRONIC OBSTRUCTIVE PULMONARY DISEASE [None]
  - DELIRIUM [None]
  - DEMENTIA ALZHEIMER'S TYPE [None]
  - DEPRESSION [None]
  - DRUG INTERACTION [None]
  - EATING DISORDER [None]
  - FALL [None]
  - FATIGUE [None]
  - GASTROENTERITIS [None]
  - HAEMORRHOIDS [None]
  - HUMERUS FRACTURE [None]
  - ISCHAEMIC CARDIOMYOPATHY [None]
  - JOINT INJURY [None]
  - MUSCULOSKELETAL CHEST PAIN [None]
  - MYOCARDIAL INFARCTION [None]
  - PAIN IN EXTREMITY [None]
  - RIB FRACTURE [None]
  - SLEEP APNOEA SYNDROME [None]
  - STOMACH DISCOMFORT [None]
  - SYNCOPE [None]
